FAERS Safety Report 16840602 (Version 1)
Quarter: 2019Q3

REPORT INFORMATION
  Report Type: Spontaneous
  Country: CA (occurrence: CA)
  Receive Date: 20190923
  Receipt Date: 20190923
  Transmission Date: 20191005
  Serious: Yes (Life-Threatening, Hospitalization, Other)
  Sender: FDA-Public Use
  Company Number: CA-ALLERGAN-1938227US

PATIENT
  Sex: Male
  Weight: 80 kg

DRUGS (7)
  1. ASACOL [Suspect]
     Active Substance: MESALAMINE
     Indication: COLITIS
     Dosage: UNK
     Route: 065
  2. AZATHIOPRINE. [Interacting]
     Active Substance: AZATHIOPRINE
     Indication: PRODUCT USED FOR UNKNOWN INDICATION
     Dosage: 150 MG, QD
  3. RABEPRAZOLE [Concomitant]
     Active Substance: RABEPRAZOLE
     Indication: PRODUCT USED FOR UNKNOWN INDICATION
  4. SIMPONI [Interacting]
     Active Substance: GOLIMUMAB
     Indication: PRODUCT USED FOR UNKNOWN INDICATION
     Dosage: 200 MG
  5. AZATHIOPRINE TEVA [Interacting]
     Active Substance: AZATHIOPRINE
     Indication: COLITIS
     Dosage: 150 MG, QD
     Route: 048
  6. PREDNISONE. [Interacting]
     Active Substance: PREDNISONE
     Indication: PRODUCT USED FOR UNKNOWN INDICATION
     Dosage: 40 MG
  7. ALLOPURINOL. [Interacting]
     Active Substance: ALLOPURINOL
     Indication: GOUT
     Dosage: 300 MCI

REACTIONS (7)
  - Endotracheal intubation [Recovering/Resolving]
  - Candida infection [Recovering/Resolving]
  - Pneumonia [Recovering/Resolving]
  - Drug interaction [Unknown]
  - Mechanical ventilation [Recovering/Resolving]
  - Respiratory failure [Recovering/Resolving]
  - Stenotrophomonas infection [Recovering/Resolving]
